FAERS Safety Report 4608570-5 (Version None)
Quarter: 2005Q1

REPORT INFORMATION
  Report Type: 
  Country: None (occurrence: None)
  Receive Date: 20050311
  Receipt Date: 20050311
  Transmission Date: 20050727
  Serious: Yes (Hospitalization)
  Sender: FDA-Public Use
  Company Number: None

PATIENT
  Age: 39 Year
  Sex: Male
  Weight: 88 kg

DRUGS (5)
  1. EFFEXOR [Suspect]
     Indication: DEPRESSION
     Dosage: 75 MG DAILY ORAL
     Route: 048
     Dates: start: 20041101, end: 20041119
  2. LEXAPRO [Suspect]
     Indication: DEPRESSION
     Dosage: 20 MG AT BEDTIME ORAL
     Route: 048
  3. RISPERDAL [Concomitant]
  4. MULTI-VITAMIN [Concomitant]
  5. ALPRAZOLAM [Concomitant]

REACTIONS (4)
  - CONVULSION [None]
  - DEPRESSED LEVEL OF CONSCIOUSNESS [None]
  - ENCEPHALITIS [None]
  - NEUROLEPTIC MALIGNANT SYNDROME [None]
